FAERS Safety Report 4904850-4 (Version None)
Quarter: 2006Q1

REPORT INFORMATION
  Report Type: 
  Country: None (occurrence: None)
  Receive Date: 20060208
  Receipt Date: 20051012
  Transmission Date: 20060701
  Serious: No
  Sender: FDA-Public Use
  Company Number: US-GLAXOSMITHKLINE-A0578010A

PATIENT
  Age: 51 Year
  Sex: Male

DRUGS (5)
  1. PAXIL [Suspect]
     Indication: OBSESSIVE-COMPULSIVE DISORDER
     Dosage: 40MG PER DAY
     Route: 048
  2. VALIUM [Concomitant]
  3. ULTRAM [Concomitant]
  4. MUSCLE RELAXANT [Concomitant]
  5. NAPROXEN SODIUM [Concomitant]
     Route: 065

REACTIONS (1)
  - FEELING JITTERY [None]
